FAERS Safety Report 21654126 (Version 5)
Quarter: 2023Q1

REPORT INFORMATION
  Report Type: Report from Study
  Country: JP (occurrence: JP)
  Receive Date: 20221129
  Receipt Date: 20230220
  Transmission Date: 20230417
  Serious: Yes (Hospitalization, Disabling)
  Sender: FDA-Public Use
  Company Number: JP-ABBVIE-19K-087-3170132-00

PATIENT
  Age: 68 Year
  Sex: Male
  Weight: 60 kg

DRUGS (19)
  1. CARBIDOPA\LEVODOPA [Suspect]
     Active Substance: CARBIDOPA\LEVODOPA
     Indication: Parkinson^s disease
     Dosage: MD: 2 ML, CD: 1 ML/HR ? 14 HRS, ED: 1 ML/UNIT ? 0
     Route: 050
     Dates: start: 20210315, end: 20210317
  2. CARBIDOPA\LEVODOPA [Suspect]
     Active Substance: CARBIDOPA\LEVODOPA
     Dosage: MD: 0.5 ML, CD: 0.5 ML/HR ? 14 HRS, ED: 0.5 ML/UNIT ? 0
     Route: 050
     Dates: start: 20210323, end: 20210405
  3. CARBIDOPA\LEVODOPA [Suspect]
     Active Substance: CARBIDOPA\LEVODOPA
     Dosage: MD: 0.1 ML, CD: 0.1 ML/HR ? 14 HRS, ED: 0.1 ML/UNIT ? 0
     Route: 050
     Dates: start: 20210318, end: 20210319
  4. CARBIDOPA\LEVODOPA [Suspect]
     Active Substance: CARBIDOPA\LEVODOPA
     Dosage: MD: 0.5 ML, CD: 1.0 ML/HR ? 14 HRS, ED: 0.5 ML/UNIT ? 0
     Route: 050
     Dates: start: 20210321, end: 20210322
  5. CARBIDOPA\LEVODOPA [Suspect]
     Active Substance: CARBIDOPA\LEVODOPA
     Dosage: MD: 0.5 ML, CD: 0.5 ML/HR ? 14 HRS, ED: 0.1 ML/UNIT ? 0
     Route: 050
     Dates: start: 20210320, end: 20210320
  6. CARBIDOPA\LEVODOPA [Suspect]
     Active Substance: CARBIDOPA\LEVODOPA
     Route: 050
  7. CARBIDOPA\LEVODOPA [Suspect]
     Active Substance: CARBIDOPA\LEVODOPA
     Dosage: MD: 0.5 ML, CD: 0.5 ML/HR. ? 14 HRS., ED: 0.5 ML/UNIT ? 0
     Route: 050
     Dates: start: 20201001, end: 20210314
  8. CARBIDOPA\LEVODOPA [Suspect]
     Active Substance: CARBIDOPA\LEVODOPA
     Dosage: MD: 8 ML CD: 3.4 ML/HR. ? 16 HRS. ED: 1 ML/UNIT ? 1
     Route: 050
     Dates: start: 20191030, end: 20191111
  9. ROTIGOTINE [Suspect]
     Active Substance: ROTIGOTINE
     Indication: Parkinson^s disease
     Dosage: FIRST AND LAST ADMIN DATE 07 OCT 2020
     Route: 062
  10. ROTIGOTINE [Suspect]
     Active Substance: ROTIGOTINE
     Indication: Parkinson^s disease
     Dosage: FIRST ADMIN DATE 08 OCT 2020 AND LAST ADMIN DATE 14 OCT 2020
     Route: 062
  11. ROTIGOTINE [Suspect]
     Active Substance: ROTIGOTINE
     Indication: Parkinson^s disease
     Dosage: FIRST ADMIN DATE 15 OCT 2020 AND LAST ADMIN DATE 03 MAR 2021
     Route: 062
  12. METHYLCOBALAMIN [Concomitant]
     Active Substance: METHYLCOBALAMIN
     Indication: Product used for unknown indication
     Dates: end: 20210303
  13. ENTACAPONE JG [Concomitant]
     Indication: Parkinson^s disease
     Route: 048
     Dates: start: 20191114, end: 20200219
  14. ENTACAPONE JG [Concomitant]
     Indication: Parkinson^s disease
     Route: 048
     Dates: start: 20200220, end: 20200918
  15. ENTACAPONE JG [Concomitant]
     Indication: Parkinson^s disease
     Route: 048
     Dates: start: 20200919, end: 20200924
  16. ENTACAPONE JG [Concomitant]
     Indication: Parkinson^s disease
     Route: 048
     Dates: start: 20200925, end: 20210303
  17. LANSOPRAZOLE [Concomitant]
     Active Substance: LANSOPRAZOLE
     Indication: Gastrooesophageal reflux disease
     Dosage: 15 MILLIGRAM
     Route: 048
     Dates: end: 20210409
  18. SENNOSIDES [Concomitant]
     Active Substance: SENNOSIDES
     Indication: Product used for unknown indication
     Dosage: 24 MILLIGRAM
     Route: 048
     Dates: end: 20210331
  19. CLONAZEPAM [Concomitant]
     Active Substance: CLONAZEPAM
     Indication: Rapid eye movement sleep behaviour disorder
     Dosage: 1.0 MILLIGRAM
     Route: 048
     Dates: end: 20210409

REACTIONS (24)
  - Impulse-control disorder [Recovered/Resolved with Sequelae]
  - Hallucination [Recovered/Resolved with Sequelae]
  - Hallucination [Recovered/Resolved with Sequelae]
  - Delusion [Recovered/Resolved with Sequelae]
  - Stoma site infection [Recovered/Resolved]
  - Pneumonia [Recovering/Resolving]
  - Device use issue [Unknown]
  - Mobility decreased [Recovered/Resolved]
  - Mobility decreased [Unknown]
  - Stoma site discharge [Recovering/Resolving]
  - Stoma site erythema [Recovering/Resolving]
  - Dyskinesia [Recovered/Resolved]
  - Delusion [Recovered/Resolved with Sequelae]
  - Stoma site extravasation [Recovered/Resolved]
  - Abdominal pain [Not Recovered/Not Resolved]
  - Drug ineffective [Unknown]
  - On and off phenomenon [Recovered/Resolved]
  - Dyskinesia [Recovering/Resolving]
  - Parkinson^s disease [Unknown]
  - Hallucination, auditory [Recovering/Resolving]
  - Dyskinesia [Recovered/Resolved]
  - On and off phenomenon [Not Recovered/Not Resolved]
  - Insomnia [Recovered/Resolved with Sequelae]
  - Insomnia [Recovered/Resolved with Sequelae]

NARRATIVE: CASE EVENT DATE: 20191107
